FAERS Safety Report 7280027-5 (Version None)
Quarter: 2011Q1

REPORT INFORMATION
  Report Type: 
  Country: None (occurrence: None)
  Receive Date: 20110208
  Receipt Date: 20110126
  Transmission Date: 20110831
  Serious: Yes (Hospitalization, Other)
  Sender: FDA-Public Use
  Company Number: ES-ELI_LILLY_AND_COMPANY-ES201101006578

PATIENT
  Sex: Female
  Weight: 70 kg

DRUGS (12)
  1. DEPRAX [Concomitant]
     Indication: DEPRESSION
     Dosage: UNK, OTHER
     Route: 048
  2. ESERTIA [Concomitant]
     Indication: DEPRESSION
     Dosage: UNK, DAILY (1/D)
     Route: 048
  3. SEGURIL [Concomitant]
     Indication: CARDIAC DISORDER
     Dosage: UNK, DAILY (1/D)
     Route: 048
  4. PANTECTA [Concomitant]
     Indication: GASTRIC DISORDER
     Dosage: UNK, DAILY (1/D)
     Route: 048
  5. DIGOXIN [Concomitant]
     Indication: CARDIAC DISORDER
     Dosage: UNK, 1/2/24HR
     Route: 048
  6. PLAVIX [Concomitant]
     Indication: CARDIAC DISORDER
     Dosage: UNK, DAILY (1/D)
     Route: 048
  7. CARDYL [Concomitant]
     Indication: HYPERLIPIDAEMIA
     Dosage: UNK, 2/D
     Route: 048
  8. URSOBILANE [Concomitant]
     Indication: EYE DISORDER
     Dosage: UNK, 2/D
     Route: 048
  9. LYRICA [Concomitant]
     Indication: PAIN
     Dosage: UNK, 2/D
     Route: 048
  10. FORTEO [Suspect]
     Indication: OSTEOPOROSIS
     Dosage: 20 UG, DAILY (1/D)
     Route: 058
     Dates: start: 20100218
  11. EZETROL [Concomitant]
     Indication: HYPERLIPIDAEMIA
     Dosage: UNK, 2/D
     Route: 048
  12. UNIKET [Concomitant]
     Indication: CARDIAC DISORDER
     Dosage: UNK, DAILY (1/D)
     Route: 048

REACTIONS (4)
  - ASTHMA [None]
  - CARDIAC DISORDER [None]
  - RED BLOOD CELL SEDIMENTATION RATE ABNORMAL [None]
  - GAIT DISTURBANCE [None]
